FAERS Safety Report 15327806 (Version 2)
Quarter: 2018Q4

REPORT INFORMATION
  Report Type: Spontaneous
  Country: US (occurrence: US)
  Receive Date: 20180828
  Receipt Date: 20181010
  Transmission Date: 20190204
  Serious: No
  Sender: FDA-Public Use
  Company Number: US-ROCHE-2134136

PATIENT
  Sex: Male
  Weight: 58.57 kg

DRUGS (2)
  1. ALECENSA [Suspect]
     Active Substance: ALECTINIB HYDROCHLORIDE
     Dosage: 4 CAPSULES (150 MG EACH) TWICE A DAY
     Route: 048
     Dates: start: 20180212
  2. ALECENSA [Suspect]
     Active Substance: ALECTINIB HYDROCHLORIDE
     Indication: NEOPLASM MALIGNANT
     Dosage: 4 DOSAGE FORMS (150 MG EACH) TWICE A DAY
     Route: 048
     Dates: start: 20180213

REACTIONS (1)
  - Pain in extremity [Not Recovered/Not Resolved]
